FAERS Safety Report 7259612-2 (Version None)
Quarter: 2011Q1

REPORT INFORMATION
  Report Type: 
  Country: None (occurrence: None)
  Receive Date: 20110130
  Receipt Date: 20101008
  Transmission Date: 20110831
  Serious: No
  Sender: FDA-Public Use
  Company Number: PR-ABBOTT-10P-131-0670571-00

PATIENT
  Sex: Female
  Weight: 78.088 kg

DRUGS (3)
  1. NATURAL SUPLEMMENT FOR BONES [Concomitant]
     Indication: BONE DISORDER
     Route: 048
  2. FOLIC ACID [Concomitant]
     Indication: MINERAL SUPPLEMENTATION
     Route: 048
  3. HUMIRA [Suspect]
     Indication: RHEUMATOID ARTHRITIS
     Dosage: 1 PEN
     Route: 058

REACTIONS (3)
  - FALL [None]
  - SPINAL COLUMN INJURY [None]
  - LIMB INJURY [None]
